FAERS Safety Report 12902705 (Version 2)
Quarter: 2016Q4

REPORT INFORMATION
  Report Type: Spontaneous
  Country: JP (occurrence: JP)
  Receive Date: 20161102
  Receipt Date: 20161208
  Transmission Date: 20170207
  Serious: Yes (Hospitalization, Other)
  Sender: FDA-Public Use
  Company Number: JP-GLAXOSMITHKLINE-JP2016JPN160020

PATIENT
  Age: 10 Decade
  Sex: Female

DRUGS (6)
  1. VALTREX [Suspect]
     Active Substance: VALACYCLOVIR HYDROCHLORIDE
     Indication: HERPES ZOSTER
     Dosage: 1000 MG, TID
     Route: 048
     Dates: start: 20161020, end: 20161026
  2. FERROMIA (JAPAN) [Concomitant]
     Dosage: 50 MG, 1D
  3. GASMOTIN [Concomitant]
     Active Substance: MOSAPRIDE CITRATE
     Dosage: 10 MG, 1D
  4. BONALON [Concomitant]
     Active Substance: ALENDRONATE SODIUM
     Dosage: 35 MG, WE
  5. SOLANAX [Concomitant]
     Active Substance: ALPRAZOLAM
     Dosage: 0.4 MG, 1D
  6. NEXIUM CAPSULE [Concomitant]
     Dosage: 20 MG, 1D

REACTIONS (5)
  - Depressed level of consciousness [Recovering/Resolving]
  - Renal disorder [Unknown]
  - Renal impairment [Unknown]
  - Pneumonia aspiration [Unknown]
  - Vomiting [Recovered/Resolved]

NARRATIVE: CASE EVENT DATE: 20161026
